FAERS Safety Report 24987278 (Version 1)
Quarter: 2025Q1

REPORT INFORMATION
  Report Type: Spontaneous
  Country: US (occurrence: US)
  Receive Date: 20250219
  Receipt Date: 20250219
  Transmission Date: 20250409
  Serious: No
  Sender: MERCK SHARP & DOHME LLC
  Company Number: US-PFIZER INC-202500025325

PATIENT
  Age: 61 Year
  Sex: Female

DRUGS (2)
  1. TUCATINIB [Suspect]
     Active Substance: TUCATINIB
     Indication: Breast cancer female
     Dosage: TAKE 300 MG (2 TAB) ORALLY EVERY 12 HRS?STRENGTH: 150 MG
     Route: 048
  2. TRAZIMERA [Concomitant]
     Active Substance: TRASTUZUMAB-QYYP
     Indication: Breast cancer female

REACTIONS (1)
  - Off label use [Unknown]
